FAERS Safety Report 24775007 (Version 2)
Quarter: 2025Q1

REPORT INFORMATION
  Report Type: Spontaneous
  Country: AR (occurrence: AR)
  Receive Date: 20241226
  Receipt Date: 20250121
  Transmission Date: 20250408
  Serious: Yes (Hospitalization, Other)
  Sender: RANBAXY
  Company Number: AR-SUN PHARMACEUTICAL INDUSTRIES LTD-2024R1-486299

PATIENT
  Age: 77 Year
  Sex: Female

DRUGS (1)
  1. ODOMZO [Suspect]
     Active Substance: SONIDEGIB
     Indication: Basal cell carcinoma
     Dosage: 200 MILLIGRAM, OD
     Route: 065
     Dates: start: 20230904, end: 20241021

REACTIONS (4)
  - Haemorrhage [Unknown]
  - Gastric ulcer [Unknown]
  - Anosmia [Unknown]
  - Ageusia [Unknown]
